FAERS Safety Report 5832071-X (Version None)
Quarter: 2008Q3

REPORT INFORMATION
  Report Type: 
  Country: None (occurrence: None)
  Receive Date: 20080804
  Receipt Date: 20080725
  Transmission Date: 20090109
  Serious: Yes (Hospitalization, Other)
  Sender: FDA-Public Use
  Company Number: NL-TEVA-175192USA

PATIENT
  Sex: Female

DRUGS (1)
  1. PIMOZIDE TABLETS [Suspect]
     Indication: DRUG USE FOR UNKNOWN INDICATION
     Dosage: 2 MG IN ONE DAY
     Route: 048

REACTIONS (2)
  - ATRIAL FIBRILLATION [None]
  - WHITE BLOOD CELL COUNT INCREASED [None]
